FAERS Safety Report 6221510-0 (Version None)
Quarter: 2009Q2

REPORT INFORMATION
  Report Type: 
  Country: None (occurrence: None)
  Receive Date: 20090610
  Receipt Date: 20090601
  Transmission Date: 20091009
  Serious: Yes (Other)
  Sender: FDA-Public Use
  Company Number: PHHY2009CA18869

PATIENT
  Sex: Female

DRUGS (6)
  1. ACLASTA [Suspect]
     Indication: OSTEOPOROSIS
     Dosage: UNK
     Dates: start: 20080501, end: 20080501
  2. ACLASTA [Suspect]
     Dosage: UNK
     Dates: start: 20090513, end: 20090513
  3. AZOPT [Concomitant]
  4. EBIXA [Concomitant]
     Indication: GLAUCOMA
  5. ZALETIN [Concomitant]
     Indication: EYE DISORDER
  6. CELEBREX [Concomitant]

REACTIONS (7)
  - JOINT SWELLING [None]
  - MUSCLE SPASMS [None]
  - MUSCULAR WEAKNESS [None]
  - MUSCULOSKELETAL STIFFNESS [None]
  - PAIN [None]
  - PYREXIA [None]
  - THERAPEUTIC RESPONSE UNEXPECTED [None]
